FAERS Safety Report 15109303 (Version 3)
Quarter: 2018Q3

REPORT INFORMATION
  Report Type: Spontaneous
  Country: JP (occurrence: JP)
  Receive Date: 20180705
  Receipt Date: 20180816
  Transmission Date: 20181010
  Serious: Yes (Hospitalization, Other)
  Sender: FDA-Public Use
  Company Number: JP-ROCHE-2150420

PATIENT
  Age: 82 Year
  Sex: Female

DRUGS (5)
  1. LEVOFLOXACIN. [Concomitant]
     Active Substance: LEVOFLOXACIN
     Indication: PRODUCT USED FOR UNKNOWN INDICATION
     Dosage: UNK
     Route: 047
  2. LUCENTIS [Suspect]
     Active Substance: RANIBIZUMAB
     Indication: RETINAL VEIN OCCLUSION
     Route: 031
     Dates: start: 20171102
  3. LUCENTIS [Suspect]
     Active Substance: RANIBIZUMAB
     Indication: AGE-RELATED MACULAR DEGENERATION
     Route: 031
     Dates: start: 20171207
  4. ADALAT [Concomitant]
     Active Substance: NIFEDIPINE
     Indication: HYPERTENSION
     Route: 065
  5. LUCENTIS [Suspect]
     Active Substance: RANIBIZUMAB
     Route: 031
     Dates: start: 20180118

REACTIONS (8)
  - Decreased appetite [Unknown]
  - Dizziness [Unknown]
  - Nausea [Unknown]
  - Cerebellar infarction [Recovered/Resolved]
  - Headache [Unknown]
  - Atrial fibrillation [Recovering/Resolving]
  - Blood pressure increased [Recovering/Resolving]
  - Facial paralysis [Unknown]

NARRATIVE: CASE EVENT DATE: 201803
